FAERS Safety Report 5015868-8 (Version None)
Quarter: 2006Q2

REPORT INFORMATION
  Report Type: 
  Country: None (occurrence: None)
  Receive Date: 20060526
  Receipt Date: 20060517
  Transmission Date: 20061013
  Serious: Yes (Other)
  Sender: FDA-Public Use
  Company Number: US017547

PATIENT
  Age: 75 Year
  Sex: Female

DRUGS (1)
  1. TRISENOX [Suspect]
     Indication: ACUTE PROMYELOCYTIC LEUKAEMIA
     Dosage: 9.9 MG QD INTRAVENOUS DRIP
     Route: 041
     Dates: start: 20050713, end: 20050811

REACTIONS (1)
  - PANCYTOPENIA [None]
